FAERS Safety Report 11802785 (Version 1)
Quarter: 2015Q4

REPORT INFORMATION
  Report Type: Spontaneous
  Country: US (occurrence: US)
  Receive Date: 20151204
  Receipt Date: 20151204
  Transmission Date: 20160305
  Serious: No
  Sender: FDA-Public Use
  Company Number: US-BEH-2015048384

PATIENT
  Sex: Female
  Weight: 72 kg

DRUGS (6)
  1. BERINERT [Suspect]
     Active Substance: HUMAN C1-ESTERASE INHIBITOR
     Indication: HEREDITARY ANGIOEDEMA
     Route: 042
  2. LIDOCAINE/PRILOCAINE [Concomitant]
  3. PRILOSEC [Concomitant]
     Active Substance: OMEPRAZOLE MAGNESIUM
  4. CLARITIN [Concomitant]
     Active Substance: LORATADINE
  5. HEPARIN [Concomitant]
     Active Substance: HEPARIN SODIUM
     Dosage: 100 U/ML
  6. SODIUM CHLORIDE. [Concomitant]
     Active Substance: SODIUM CHLORIDE

REACTIONS (1)
  - Nasopharyngitis [Unknown]
